FAERS Safety Report 18653595 (Version 1)
Quarter: 2020Q4

REPORT INFORMATION
  Report Type: Spontaneous
  Country: US (occurrence: US)
  Receive Date: 20201223
  Receipt Date: 20201223
  Transmission Date: 20210114
  Serious: No
  Sender: FDA-Public Use
  Company Number: US-ASTRAZENECA-2020SF60593

PATIENT
  Sex: Female
  Weight: 68 kg

DRUGS (2)
  1. BASAGALAR INSULIN INJECTION [Concomitant]
     Indication: TYPE 2 DIABETES MELLITUS
     Dates: start: 20201120
  2. BYDUREON BCISE [Suspect]
     Active Substance: EXENATIDE
     Indication: TYPE 2 DIABETES MELLITUS
     Route: 058

REACTIONS (7)
  - Injection site discomfort [Unknown]
  - Injection site pain [Not Recovered/Not Resolved]
  - Drug delivery system issue [Unknown]
  - Wrong technique in device usage process [Unknown]
  - Injection site reaction [Unknown]
  - Device leakage [Unknown]
  - Intentional device misuse [Unknown]
